FAERS Safety Report 6829772-3 (Version None)
Quarter: 2010Q3

REPORT INFORMATION
  Report Type: 
  Country: None (occurrence: None)
  Receive Date: 20100709
  Receipt Date: 20080116
  Transmission Date: 20110219
  Serious: No
  Sender: FDA-Public Use
  Company Number: US-PFIZER INC-2007008888

PATIENT
  Sex: Female
  Weight: 53.07 kg

DRUGS (8)
  1. CHANTIX [Suspect]
     Indication: SMOKING CESSATION THERAPY
     Dates: start: 20070701
  2. NICOTINE [Suspect]
     Indication: SMOKING CESSATION THERAPY
     Dates: end: 20070801
  3. NICOTINE [Suspect]
     Indication: SMOKING CESSATION THERAPY
     Dates: end: 20070801
  4. LEXAPRO [Concomitant]
  5. PARA-SELTZER [Concomitant]
  6. TYLENOL-500 [Concomitant]
  7. ALEVE (CAPLET) [Concomitant]
  8. AVAPRO [Concomitant]

REACTIONS (4)
  - FATIGUE [None]
  - HYPERSENSITIVITY [None]
  - MALAISE [None]
  - NAUSEA [None]
